FAERS Safety Report 15200769 (Version 1)
Quarter: 2018Q3

REPORT INFORMATION
  Report Type: Spontaneous
  Country: US (occurrence: US)
  Receive Date: 20180726
  Receipt Date: 20180726
  Transmission Date: 20181010
  Serious: No
  Sender: FDA-Public Use
  Company Number: US-SUN PHARMACEUTICAL INDUSTRIES LTD-2018US-177288

PATIENT
  Sex: Male

DRUGS (2)
  1. TESTOSTERONE. [Suspect]
     Active Substance: TESTOSTERONE
     Indication: MULTIPLE INJURIES
  2. TESTOSTERONE. [Suspect]
     Active Substance: TESTOSTERONE
     Indication: BLOOD TESTOSTERONE DECREASED
     Dosage: 0.5 ML, 1/WEEK
     Route: 065
     Dates: start: 2018

REACTIONS (2)
  - Product deposit [Unknown]
  - Poor quality drug administered [Unknown]

NARRATIVE: CASE EVENT DATE: 2018
